FAERS Safety Report 5558200-3 (Version None)
Quarter: 2007Q4

REPORT INFORMATION
  Report Type: 
  Country: None (occurrence: None)
  Receive Date: 20071214
  Receipt Date: 20071204
  Transmission Date: 20080405
  Serious: Yes (Other)
  Sender: FDA-Public Use
  Company Number: US-PFIZER INC-2007051256

PATIENT
  Sex: Male
  Weight: 77.1 kg

DRUGS (13)
  1. SUTENT [Suspect]
     Indication: METASTATIC RENAL CELL CARCINOMA
     Route: 048
     Dates: start: 20051214, end: 20070529
  2. GEFITINIB [Suspect]
     Route: 048
     Dates: start: 20051214, end: 20070529
  3. ACETYLSALICYLIC ACID SRT [Concomitant]
     Route: 048
  4. ACTOS [Concomitant]
     Route: 048
     Dates: start: 20050616
  5. FOLIC ACID [Concomitant]
     Route: 048
     Dates: start: 20051206
  6. PEPTO-BISMOL [Concomitant]
     Route: 048
     Dates: start: 20070123, end: 20070619
  7. VITAMIN E [Concomitant]
     Route: 048
     Dates: start: 20051206
  8. TIMOLOL MALEATE [Concomitant]
     Route: 031
     Dates: start: 20061227
  9. PROTONIX [Concomitant]
     Route: 048
     Dates: start: 20060627
  10. NOVOLOG [Concomitant]
     Route: 058
     Dates: start: 20060919
  11. LANTUS [Concomitant]
     Route: 058
     Dates: start: 20060404
  12. LOPERAMIDE HCL [Concomitant]
     Route: 048
     Dates: start: 20060815, end: 20070619
  13. TUMS [Concomitant]
     Route: 048
     Dates: start: 20060316, end: 20070619

REACTIONS (1)
  - MYOCARDIAL ISCHAEMIA [None]
